FAERS Safety Report 8581127-X (Version None)
Quarter: 2012Q3

REPORT INFORMATION
  Report Type: 
  Country: None (occurrence: None)
  Receive Date: 20120809
  Receipt Date: 20120730
  Transmission Date: 20120928
  Serious: Yes (Other)
  Sender: FDA-Public Use
  Company Number: JP-JNJFOC-20120712739

PATIENT

DRUGS (7)
  1. CYCLOPHOSPHAMIDE [Suspect]
     Indication: BREAST CANCER
     Dosage: 500 MG/M2 FOR FAC REGIMEN AND 600 MG/M2 FOR AC REGIMEN
     Route: 065
  2. EPIRUBICIN [Suspect]
     Indication: BREAST CANCER
     Dosage: 75-100 MG/M2
     Route: 065
  3. DOXORUBICIN HYDROCHLORIDE [Suspect]
     Indication: BREAST CANCER
     Dosage: 40-60 MG/M2 FOR FAC AND 60 MG/M2 FOR AC
     Route: 042
  4. PACLITAXEL [Suspect]
     Indication: BREAST CANCER
     Route: 065
  5. DOCETAXEL [Suspect]
     Indication: BREAST CANCER
     Route: 065
  6. TRASTUZUMAB [Suspect]
     Indication: BREAST CANCER
     Dosage: 8 MG/KG FOLLOWED BY MAINTENANCE (MD) 6 MG/KG EVERY 3 WKS OR 4 MG/KG FOLLOWED BY 2 MG/KG WEEKLY MD
     Route: 065
  7. FLUOROURACIL [Suspect]
     Indication: BREAST CANCER
     Route: 065

REACTIONS (6)
  - INFUSION RELATED REACTION [None]
  - NAIL DISORDER [None]
  - CARDIAC FAILURE CONGESTIVE [None]
  - EJECTION FRACTION DECREASED [None]
  - DYSPNOEA [None]
  - BRAIN NATRIURETIC PEPTIDE INCREASED [None]
